FAERS Safety Report 5041517-9 (Version None)
Quarter: 2006Q2

REPORT INFORMATION
  Report Type: 
  Country: None (occurrence: None)
  Receive Date: 20060627
  Receipt Date: 20060619
  Transmission Date: 20061013
  Serious: Yes (Hospitalization, Other)
  Sender: FDA-Public Use
  Company Number: 200612413BCC

PATIENT
  Age: 82 Year
  Sex: Female
  Weight: 48.5349 kg

DRUGS (5)
  1. BAYER CHILDREN'S CHERRY (ACETYLSALICYLIC ACID) [Suspect]
     Dosage: 81 MG QD ORAL
     Route: 048
     Dates: start: 19990101
  2. SYNTHROID [Concomitant]
  3. FOSAMAX [Concomitant]
  4. CALCIUM GLUCONATE [Concomitant]
  5. MULTIVITAMIN [Concomitant]

REACTIONS (1)
  - MYOCARDIAL INFARCTION [None]
